FAERS Safety Report 9112888 (Version 1)
Quarter: 2013Q1

REPORT INFORMATION
  Report Type: Report from Study
  Country: US (occurrence: US)
  Receive Date: 20130211
  Receipt Date: 20130211
  Transmission Date: 20140127
  Serious: Yes (Hospitalization)
  Sender: FDA-Public Use
  Company Number: US-SANOFI-AVENTIS-2013SA009667

PATIENT
  Age: 79 Year
  Sex: Female
  Weight: 66.67 kg

DRUGS (13)
  1. OXALIPLATIN [Suspect]
     Indication: COLON CANCER
     Route: 042
     Dates: start: 20120918, end: 20130108
  2. FLUOROURACIL [Suspect]
     Indication: COLON CANCER
     Route: 042
     Dates: start: 20120918, end: 20130108
  3. BLINDED THERAPY [Suspect]
     Indication: COLON CANCER
     Route: 042
     Dates: start: 20120918, end: 20130108
  4. BEVACIZUMAB [Suspect]
     Indication: COLON CANCER
     Route: 042
     Dates: start: 20120918, end: 20130108
  5. CALCIUM FOLINATE [Suspect]
     Indication: COLON CANCER
     Route: 042
     Dates: start: 20120918, end: 20130108
  6. ESCITALOPRAM [Concomitant]
     Indication: ANXIETY
     Dates: start: 2012
  7. ESCITALOPRAM [Concomitant]
     Indication: DEPRESSION
     Dates: start: 2012
  8. ALPRAZOLAM [Concomitant]
     Indication: ANXIETY
     Dates: start: 2012
  9. ALPRAZOLAM [Concomitant]
     Indication: DEPRESSION
     Dates: start: 2012
  10. FEXOFENADINE [Concomitant]
     Indication: SEASONAL ALLERGY
     Dates: start: 201209
  11. ESOMEPRAZOLE [Concomitant]
  12. CHOLECALCIFEROL [Concomitant]
     Dosage: DOSE:50 KILO UNITS
     Dates: start: 201209
  13. ASCORBIC ACID [Concomitant]

REACTIONS (3)
  - Syncope [Recovered/Resolved]
  - Encephalopathy [Not Recovered/Not Resolved]
  - Myocardial infarction [Not Recovered/Not Resolved]
